FAERS Safety Report 22018232 (Version 3)
Quarter: 2024Q1

REPORT INFORMATION
  Report Type: Report from Study
  Country: JP (occurrence: JP)
  Receive Date: 20230221
  Receipt Date: 20240306
  Transmission Date: 20240409
  Serious: Yes (Life-Threatening, Hospitalization)
  Sender: FDA-Public Use
  Company Number: JP-BIOMARINAP-JP-2023-148624

PATIENT

DRUGS (1)
  1. VOXZOGO [Suspect]
     Active Substance: VOSORITIDE
     Indication: Osteochondrodysplasia
     Dosage: 0.3, UNK, QD
     Route: 058
     Dates: start: 20221115

REACTIONS (5)
  - Tracheal stenosis [Recovering/Resolving]
  - Hypoventilation [Recovered/Resolved]
  - Cardiac arrest [Recovered/Resolved]
  - Infection [Unknown]
  - Hypercapnia [Unknown]

NARRATIVE: CASE EVENT DATE: 20221101
